FAERS Safety Report 24652662 (Version 1)
Quarter: 2024Q4

REPORT INFORMATION
  Report Type: Spontaneous
  Country: DE (occurrence: DE)
  Receive Date: 20241122
  Receipt Date: 20241122
  Transmission Date: 20250115
  Serious: Yes (Hospitalization, Other)
  Sender: SANDOZ
  Company Number: DE-ABBVIE-5995907

PATIENT
  Age: 21 Year
  Sex: Male
  Weight: 52 kg

DRUGS (13)
  1. PREDNISOLONE [Suspect]
     Active Substance: PREDNISOLONE
     Indication: Product used for unknown indication
     Dosage: 50.000MG QD
     Route: 065
     Dates: start: 20230928, end: 20231009
  2. RINVOQ [Suspect]
     Active Substance: UPADACITINIB
     Dosage: 15.000MG
     Route: 048
     Dates: start: 202401, end: 202403
  3. RINVOQ [Suspect]
     Active Substance: UPADACITINIB
     Indication: Product used for unknown indication
     Dosage: 30.000MG
     Route: 048
  4. RINVOQ [Suspect]
     Active Substance: UPADACITINIB
     Dosage: 30.000MG
     Route: 048
     Dates: start: 20231114, end: 2024
  5. RINVOQ [Suspect]
     Active Substance: UPADACITINIB
     Dosage: 30.000MG
     Route: 048
     Dates: start: 2024
  6. RINVOQ [Suspect]
     Active Substance: UPADACITINIB
     Dosage: 45.000MG
     Route: 048
     Dates: start: 20231103, end: 20231108
  7. AZATHIOPRINE [Concomitant]
     Active Substance: AZATHIOPRINE
     Indication: Product used for unknown indication
     Dosage: 25.000MG QD
     Route: 065
     Dates: start: 20231009, end: 20231101
  8. CEFAZOLIN [Concomitant]
     Active Substance: CEFAZOLIN
     Indication: Product used for unknown indication
     Route: 065
     Dates: start: 20231109, end: 20231113
  9. Ceftriaxone;Metronidazole [Concomitant]
     Indication: Product used for unknown indication
     Route: 065
     Dates: start: 20231013, end: 20231021
  10. INFLIXIMAB [Concomitant]
     Active Substance: INFLIXIMAB
     Indication: Product used for unknown indication
     Dosage: 250.000MG
     Route: 065
     Dates: start: 20231030
  11. INFLIXIMAB [Concomitant]
     Active Substance: INFLIXIMAB
     Dosage: LAST ADMIN IS OCT 2023
     Route: 065
     Dates: start: 20231017
  12. INFLIXIMAB [Concomitant]
     Active Substance: INFLIXIMAB
     Dosage: 5 MG/KGBW, TOTAL DOSE 250 MG, LAST ADMIN IS OCT 2023
     Route: 065
     Dates: start: 20231009
  13. PIPERACILLIN SODIUM\TAZOBACTAM SODIUM [Concomitant]
     Active Substance: PIPERACILLIN SODIUM\TAZOBACTAM SODIUM
     Indication: Product used for unknown indication
     Route: 065
     Dates: start: 20231109, end: 20231113

REACTIONS (29)
  - Hospitalisation [Unknown]
  - Central venous catheterisation [Unknown]
  - Body temperature increased [Recovered/Resolved]
  - Gastrointestinal hypomotility [Unknown]
  - Diarrhoea haemorrhagic [Not Recovered/Not Resolved]
  - Abnormal faeces [Unknown]
  - Hypoalbuminaemia [Unknown]
  - Abdominal pain [Recovering/Resolving]
  - Fat tissue increased [Unknown]
  - Mucosal discolouration [Unknown]
  - Gastrointestinal mucosa hyperaemia [Unknown]
  - Full blood count increased [Unknown]
  - Frequent bowel movements [Unknown]
  - Cold sweat [Unknown]
  - Folate deficiency [Unknown]
  - Headache [Unknown]
  - Microbiology test abnormal [Unknown]
  - Vitamin B6 deficiency [Unknown]
  - Gastrointestinal wall thickening [Unknown]
  - Gastrointestinal disorder [Unknown]
  - Parenteral nutrition [Unknown]
  - Intestinal mucosal hypertrophy [Unknown]
  - Back pain [Unknown]
  - Vitamin B1 deficiency [Unknown]
  - Vitamin D deficiency [Unknown]
  - Alopecia [Recovered/Resolved]
  - Vomiting [Unknown]
  - Cardiovascular disorder [Unknown]
  - Large intestinal ulcer [Unknown]
